FAERS Safety Report 6018756-3 (Version None)
Quarter: 2008Q4

REPORT INFORMATION
  Report Type: 
  Country: None (occurrence: None)
  Receive Date: 20081222
  Receipt Date: 20081203
  Transmission Date: 20090506
  Serious: Yes (Other)
  Sender: FDA-Public Use
  Company Number: 2008PL000279

PATIENT
  Age: 42 Year
  Sex: Female

DRUGS (2)
  1. LABETALOL HCL [Suspect]
     Indication: AORTIC INJURY
     Dosage: IV
     Route: 042
  2. ANTICOAGULANT [Concomitant]

REACTIONS (3)
  - HAEMODYNAMIC INSTABILITY [None]
  - INTRA-ABDOMINAL HAEMORRHAGE [None]
  - POST PROCEDURAL HAEMORRHAGE [None]
